FAERS Safety Report 8268859-8 (Version None)
Quarter: 2012Q2

REPORT INFORMATION
  Report Type: 
  Country: None (occurrence: None)
  Receive Date: 20120409
  Receipt Date: 20120409
  Transmission Date: 20120825
  Serious: Yes (Hospitalization)
  Sender: FDA-Public Use
  Company Number: None

PATIENT
  Sex: Male
  Weight: 90.7 kg

DRUGS (1)
  1. BACTRIM [Suspect]
     Indication: FOLLICULITIS

REACTIONS (1)
  - STEVENS-JOHNSON SYNDROME [None]
